FAERS Safety Report 9828459 (Version 3)
Quarter: 2014Q1

REPORT INFORMATION
  Report Type: Report from Study
  Country: BR (occurrence: BR)
  Receive Date: 20140117
  Receipt Date: 20140203
  Transmission Date: 20141002
  Serious: No
  Sender: FDA-Public Use
  Company Number: BR-ABBVIE-14P-020-1189561-00

PATIENT
  Age: 57 Year
  Sex: Female
  Weight: 85 kg

DRUGS (1)
  1. HUMIRA [Suspect]
     Indication: RHEUMATOID ARTHRITIS
     Route: 058
     Dates: start: 20130508, end: 20130808

REACTIONS (7)
  - Injection site reaction [Recovered/Resolved]
  - Rash macular [Recovered/Resolved]
  - Pruritus [Recovered/Resolved]
  - Blister [Recovered/Resolved]
  - Skin disorder [Recovered/Resolved]
  - Oral herpes [Recovered/Resolved]
  - Oral herpes [Recovered/Resolved]
